FAERS Safety Report 8472526-5 (Version None)
Quarter: 2012Q2

REPORT INFORMATION
  Report Type: 
  Country: None (occurrence: None)
  Receive Date: 20120627
  Receipt Date: 20120621
  Transmission Date: 20120825
  Serious: Yes (Hospitalization, Other)
  Sender: FDA-Public Use
  Company Number: US-PFIZER INC-2012150271

PATIENT
  Sex: Female
  Weight: 86.168 kg

DRUGS (6)
  1. LISINOPRIL [Concomitant]
     Indication: HYPERTENSION
     Dosage: 100 MG, 2X/DAY
  2. DOLOBID [Concomitant]
     Indication: ARTHRITIS
     Dosage: 100 MG, 2X/DAY
  3. NEURONTIN [Suspect]
     Indication: NERVE INJURY
     Dosage: 800 MG, 2X/DAY
     Dates: start: 20120401
  4. VISTARIL [Suspect]
     Indication: MUSCLE SPASMS
     Dosage: 25 MG, AS NEEDED
     Dates: start: 20110101
  5. CYMBALTA [Concomitant]
     Indication: DEPRESSION
     Dosage: 90 MG, DAILY
  6. METFORMIN [Concomitant]
     Indication: DIABETES MELLITUS
     Dosage: 1000 MG, 2X/DAY

REACTIONS (6)
  - DEHYDRATION [None]
  - BLOOD POTASSIUM DECREASED [None]
  - DRUG INEFFECTIVE [None]
  - DIARRHOEA [None]
  - ABDOMINAL DISCOMFORT [None]
  - ENZYME LEVEL INCREASED [None]
